FAERS Safety Report 24205312 (Version 2)
Quarter: 2024Q3

REPORT INFORMATION
  Report Type: Spontaneous
  Country: US (occurrence: US)
  Receive Date: 20240813
  Receipt Date: 20240905
  Transmission Date: 20241016
  Serious: No
  Sender: ROCHE
  Company Number: US-ROCHE-10000052652

PATIENT

DRUGS (1)
  1. AVASTIN [Suspect]
     Active Substance: BEVACIZUMAB
     Indication: Product used for unknown indication
     Dosage: AVASTIN VIALS 400 MG/16 ML
     Route: 042

REACTIONS (3)
  - No adverse event [Unknown]
  - Product preparation error [Unknown]
  - Product complaint [Unknown]
